FAERS Safety Report 10889377 (Version 3)
Quarter: 2015Q2

REPORT INFORMATION
  Report Type: Spontaneous
  Country: US (occurrence: US)
  Receive Date: 20150305
  Receipt Date: 20150508
  Transmission Date: 20150821
  Serious: Yes (Hospitalization)
  Sender: FDA-Public Use
  Company Number: US-JNJFOC-20150303460

PATIENT
  Age: 87 Year
  Sex: Female
  Weight: 57 kg

DRUGS (6)
  1. ASPIRIN. [Concomitant]
     Active Substance: ASPIRIN
     Dates: end: 201502
  2. CITRACAL [Concomitant]
     Active Substance: CALCIUM CITRATE
     Dates: end: 201502
  3. PEPCID [Concomitant]
     Active Substance: FAMOTIDINE
  4. LEVOTHYROXINE [Concomitant]
     Active Substance: LEVOTHYROXINE
  5. PROPRANOLOL [Concomitant]
     Active Substance: PROPRANOLOL\PROPRANOLOL HYDROCHLORIDE
  6. IMBRUVICA [Suspect]
     Active Substance: IBRUTINIB
     Indication: CHRONIC LYMPHOCYTIC LEUKAEMIA
     Route: 048
     Dates: start: 20140901, end: 20150223

REACTIONS (9)
  - Leukocytosis [Not Recovered/Not Resolved]
  - Sleep apnoea syndrome [Unknown]
  - Embolic stroke [Unknown]
  - Hyponatraemia [Recovered/Resolved]
  - Hypothyroidism [Unknown]
  - Pneumonia bacterial [Recovering/Resolving]
  - Atrial fibrillation [Recovering/Resolving]
  - Chest pain [Recovering/Resolving]
  - Gastrooesophageal reflux disease [Unknown]

NARRATIVE: CASE EVENT DATE: 201502
